FAERS Safety Report 8896686 (Version 1)
Quarter: 2013Q1

REPORT INFORMATION
  Report Type: Spontaneous
  Country: US (occurrence: None)
  Receive Date: 20121105
  Receipt Date: 20121105
  Transmission Date: 20140127
  Serious: Yes (Hospitalization)
  Sender: FDA-Public Use
  Company Number: None

PATIENT
  Age: 33 Year
  Sex: Male

DRUGS (4)
  1. LURASIDONE [Suspect]
     Indication: SCHIZOPHRENIA
     Route: 048
     Dates: start: 20121005
  2. XANAX [Concomitant]
  3. TRAZADONE [Concomitant]
  4. LOGENTIN [Concomitant]

REACTIONS (4)
  - Depression [None]
  - Hallucination, auditory [None]
  - Suicidal ideation [None]
  - Psychotic disorder [None]
